FAERS Safety Report 7999034-X (Version None)
Quarter: 2011Q4

REPORT INFORMATION
  Report Type: 
  Country: None (occurrence: None)
  Receive Date: 20111221
  Receipt Date: 20111219
  Transmission Date: 20120403
  Serious: Yes (Hospitalization)
  Sender: FDA-Public Use
  Company Number: US-ROCHE-1023620

PATIENT
  Age: 73 Year
  Sex: Female
  Weight: 76.7 kg

DRUGS (2)
  1. BENDAMUSTINE [Suspect]
     Indication: CHRONIC LYMPHOCYTIC LEUKAEMIA
     Dosage: 175
     Route: 042
     Dates: start: 20110511, end: 20110830
  2. MABTHERA [Suspect]
     Indication: CHRONIC LYMPHOCYTIC LEUKAEMIA
     Dosage: 739
     Route: 042
     Dates: start: 20110511, end: 20110830

REACTIONS (3)
  - PLEURAL EFFUSION [None]
  - URINARY TRACT INFECTION [None]
  - DYSPNOEA [None]
